FAERS Safety Report 20161050 (Version 2)
Quarter: 2021Q4

REPORT INFORMATION
  Report Type: Report from Study
  Country: FR (occurrence: FR)
  Receive Date: 20211208
  Receipt Date: 20211221
  Transmission Date: 20220303
  Serious: Yes (Other)
  Sender: FDA-Public Use
  Company Number: FR-INCYTE CORPORATION-2021IN011084

PATIENT
  Age: 48 Year
  Sex: Male

DRUGS (4)
  1. PONATINIB [Suspect]
     Active Substance: PONATINIB
     Indication: Chronic myeloid leukaemia
     Dosage: 45 MILLIGRAM, QD
     Route: 048
     Dates: start: 20210719
  2. PONATINIB [Suspect]
     Active Substance: PONATINIB
     Dosage: UNK
     Route: 048
     Dates: start: 20211125
  3. AZACITIDINE [Suspect]
     Active Substance: AZACITIDINE
     Indication: Chronic myeloid leukaemia
     Dosage: 150 MILLIGRAM
     Route: 058
     Dates: start: 20210719, end: 20211116
  4. Covid-19 vaccine [Concomitant]
     Indication: COVID-19 immunisation
     Dosage: UNK
     Route: 065

REACTIONS (2)
  - Troponin increased [Recovered/Resolved]
  - Chest pain [Recovered/Resolved]

NARRATIVE: CASE EVENT DATE: 20211124
